FAERS Safety Report 8168488-0 (Version None)
Quarter: 2012Q1

REPORT INFORMATION
  Report Type: 
  Country: None (occurrence: None)
  Receive Date: 20120227
  Receipt Date: 20120227
  Transmission Date: 20120608
  Serious: No
  Sender: FDA-Public Use
  Company Number: None

PATIENT
  Age: 47 Year
  Sex: Female
  Weight: 74.842 kg

DRUGS (2)
  1. NEURONTIN [Suspect]
     Indication: SLEEP DISORDER
     Dosage: 1 PILL AT BEDTIME
     Dates: start: 20120223, end: 20120224
  2. NEURONTIN [Suspect]
     Indication: PAIN MANAGEMENT
     Dosage: 1 PILL AT BEDTIME
     Dates: start: 20120223, end: 20120224

REACTIONS (9)
  - ANXIETY [None]
  - RESTLESSNESS [None]
  - TEMPERATURE INTOLERANCE [None]
  - SACCADIC EYE MOVEMENT [None]
  - PARAESTHESIA [None]
  - CHEST PAIN [None]
  - CHEST DISCOMFORT [None]
  - HEART RATE INCREASED [None]
  - HYPOAESTHESIA [None]
